FAERS Safety Report 8187755-8 (Version None)
Quarter: 2012Q1

REPORT INFORMATION
  Report Type: 
  Country: None (occurrence: None)
  Receive Date: 20120221
  Receipt Date: 20111123
  Transmission Date: 20120608
  Serious: Yes (Hospitalization)
  Sender: FDA-Public Use
  Company Number: PHEH2011US010213

PATIENT
  Age: 71 Year
  Sex: Female
  Weight: 55.8 kg

DRUGS (1)
  1. TOBI [Suspect]
     Indication: BRONCHIECTASIS
     Dosage: 300 MG, BID, INHALATION
     Route: 055
     Dates: start: 20111117, end: 20111119

REACTIONS (3)
  - CHEST PAIN [None]
  - DYSPNOEA [None]
  - ASTHENIA [None]
